FAERS Safety Report 8256510 (Version 5)
Quarter: 2014Q3

REPORT INFORMATION
  Report Type: Report from Study
  Country: JP (occurrence: JP)
  Receive Date: 20111121
  Receipt Date: 20140910
  Transmission Date: 20150326
  Serious: Yes (Other)
  Sender: FDA-Public Use
  Company Number: JP-US-EMD SERONO, INC.-7080566

PATIENT
  Sex: Female
  Weight: 70 kg

DRUGS (4)
  1. GONAL-F RFF [Suspect]
     Active Substance: FOLLITROPIN
     Indication: OVULATION INDUCTION
     Route: 058
     Dates: start: 20110328, end: 20110402
  2. GONAL-F RFF [Suspect]
     Active Substance: FOLLITROPIN
     Route: 058
     Dates: start: 20110409, end: 20110410
  3. HCG [Concomitant]
     Active Substance: GONADOTROPHIN, CHORIONIC
     Indication: OVULATION INDUCTION
     Route: 030
     Dates: start: 20110411, end: 20110411
  4. GONAL-F RFF [Suspect]
     Active Substance: FOLLITROPIN
     Route: 058
     Dates: start: 20110403, end: 20110407

REACTIONS (1)
  - Abortion missed [Recovered/Resolved]

NARRATIVE: CASE EVENT DATE: 20110527
